FAERS Safety Report 5853274-4 (Version None)
Quarter: 2008Q3

REPORT INFORMATION
  Report Type: 
  Country: None (occurrence: None)
  Receive Date: 20080813
  Receipt Date: 20080811
  Transmission Date: 20090109
  Serious: Yes (Other)
  Sender: FDA-Public Use
  Company Number: AEUSA200800149

PATIENT
  Age: 36 Year
  Sex: Male
  Weight: 77.1115 kg

DRUGS (8)
  1. GAMUNEX [Suspect]
     Indication: AMYOTROPHIC LATERAL SCLEROSIS
     Dosage: 1 G/KG; 1X; IV
     Route: 042
  2. GAMUNEX [Suspect]
     Indication: MOTOR NEURONE DISEASE
     Dosage: 1 G/KG; 1X; IV
     Route: 042
  3. GAMUNEX [Suspect]
     Indication: MULTIFOCAL MOTOR NEUROPATHY
     Dosage: 1 G/KG; 1X; IV
     Route: 042
  4. IBUPROFEN [Concomitant]
  5. TYLENOL (CAPLET) [Concomitant]
  6. NEURONTIN [Concomitant]
  7. RILUTEK [Concomitant]
  8. MOTRIN [Concomitant]

REACTIONS (1)
  - HEPATITIS C ANTIBODY POSITIVE [None]
